FAERS Safety Report 9139652 (Version 1)
Quarter: 2013Q1

REPORT INFORMATION
  Report Type: Spontaneous
  Country: US (occurrence: US)
  Receive Date: 20130305
  Receipt Date: 20130305
  Transmission Date: 20140127
  Serious: No
  Sender: FDA-Public Use
  Company Number: US-PFIZER INC-2013074395

PATIENT
  Age: 60 Year
  Sex: Male
  Weight: 81.63 kg

DRUGS (1)
  1. LIPITOR [Suspect]
     Dosage: UNK
     Dates: end: 201106

REACTIONS (2)
  - Myalgia [Recovered/Resolved]
  - Muscle strain [Recovered/Resolved]
